FAERS Safety Report 4376065-2 (Version None)
Quarter: 2004Q2

REPORT INFORMATION
  Report Type: 
  Country: None (occurrence: None)
  Receive Date: 20040607
  Receipt Date: 20040601
  Transmission Date: 20050107
  Serious: Yes (Hospitalization)
  Sender: FDA-Public Use
  Company Number: 2004036067

PATIENT
  Sex: Male

DRUGS (1)
  1. GABAPENTIN [Suspect]
     Indication: NEUROPATHIC PAIN
     Dosage: ORAL
     Route: 048
     Dates: start: 20040101, end: 20040101

REACTIONS (1)
  - THROMBOCYTOPENIA [None]
